FAERS Safety Report 8730720 (Version 2)
Quarter: 2013Q1

REPORT INFORMATION
  Report Type: Spontaneous
  Country: US (occurrence: US)
  Receive Date: 20120818
  Receipt Date: 20130218
  Transmission Date: 20140127
  Serious: No
  Sender: FDA-Public Use
  Company Number: PHEH2012US016103

PATIENT
  Age: 64 Year
  Sex: Male

DRUGS (1)
  1. TASIGNA [Suspect]
     Indication: CHRONIC LYMPHOCYTIC LEUKAEMIA
     Dosage: 300 MG, Q12H
     Route: 048
     Dates: start: 20110623, end: 20130128

REACTIONS (2)
  - Rash [Unknown]
  - Labelled drug-food interaction medication error [Recovered/Resolved]
